FAERS Safety Report 4328537-4 (Version None)
Quarter: 2004Q1

REPORT INFORMATION
  Report Type: 
  Country: None (occurrence: None)
  Receive Date: 20040319
  Receipt Date: 20031229
  Transmission Date: 20041129
  Serious: No
  Sender: FDA-Public Use
  Company Number: US-JNJFOC-20040100101

PATIENT
  Age: 38 Year
  Sex: Female
  Weight: 63.5036 kg

DRUGS (5)
  1. ORTHO EVRA [Suspect]
     Indication: CONTRACEPTION
     Dosage: 1 DOSE (S), 1 IN 1 WEEK, TRANSDERMAL
     Route: 062
     Dates: start: 20031003, end: 20040105
  2. HYDROCODONE (HYDROCODONE) [Concomitant]
  3. FOLIC ACID [Concomitant]
  4. SLOW FE (FERROUS SULFATE) [Concomitant]
  5. VITAMIN (VITAMINS NOS) [Concomitant]

REACTIONS (3)
  - DYSFUNCTIONAL UTERINE BLEEDING [None]
  - DYSMENORRHOEA [None]
  - MENORRHAGIA [None]
